FAERS Safety Report 11222916 (Version 1)
Quarter: 2015Q2

REPORT INFORMATION
  Report Type: Spontaneous
  Country: US (occurrence: US)
  Receive Date: 20150626
  Receipt Date: 20150626
  Transmission Date: 20150821
  Serious: Yes (Hospitalization, Other)
  Sender: FDA-Public Use
  Company Number: US-GLAXOSMITHKLINE-US2015091356

PATIENT
  Sex: Male

DRUGS (1)
  1. VOTRIENT [Suspect]
     Active Substance: PAZOPANIB HYDROCHLORIDE
     Indication: RENAL CANCER METASTATIC
     Dosage: 800 MG, 1D
     Route: 048
     Dates: start: 2012, end: 20150611

REACTIONS (4)
  - Cerebrovascular accident [Recovered/Resolved]
  - Radiotherapy [Unknown]
  - Malignant neoplasm progression [Unknown]
  - Urinary tract infection [Recovered/Resolved]
